FAERS Safety Report 8370688-1 (Version None)
Quarter: 2012Q1

REPORT INFORMATION
  Report Type: 
  Country: None (occurrence: None)
  Receive Date: 20120323
  Receipt Date: 20110919
  Transmission Date: 20120608
  Serious: Yes (Other)
  Sender: FDA-Public Use
  Company Number: 163-21880-11092414

PATIENT
  Age: 70 Year
  Sex: Female

DRUGS (1)
  1. REVLIMID [Suspect]
     Indication: MULTIPLE MYELOMA
     Dosage: 25 MG, DAILY 21/28, PO
     Route: 048
     Dates: start: 20110601

REACTIONS (5)
  - HYPOAESTHESIA [None]
  - TREMOR [None]
  - MUSCULAR WEAKNESS [None]
  - HALLUCINATION, AUDITORY [None]
  - DIPLOPIA [None]
